FAERS Safety Report 19931378 (Version 3)
Quarter: 2025Q1

REPORT INFORMATION
  Report Type: Spontaneous
  Country: US (occurrence: US)
  Receive Date: 20211008
  Receipt Date: 20250208
  Transmission Date: 20250408
  Serious: Yes (Death)
  Sender: AVEO PHARMACEUTICALS
  Company Number: US-AVEO ONCOLOGY-2021-AVEO-US003617

PATIENT

DRUGS (1)
  1. FOTIVDA [Suspect]
     Active Substance: TIVOZANIB HYDROCHLORIDE
     Indication: Renal cell carcinoma
     Dosage: 0.89 MG, DAILY,1 CAPSULE DAILY X 21 DAYS ON 7 DAYS OFF
     Route: 048
     Dates: start: 20210909, end: 20210923

REACTIONS (1)
  - Renal cancer [Fatal]

NARRATIVE: CASE EVENT DATE: 20210923
